FAERS Safety Report 9737530 (Version 2)
Quarter: 2013Q4

REPORT INFORMATION
  Report Type: Spontaneous
  Country: NO (occurrence: NO)
  Receive Date: 20131207
  Receipt Date: 20131213
  Transmission Date: 20140711
  Serious: Yes (Hospitalization)
  Sender: FDA-Public Use
  Company Number: NO-ACCORD-020588

PATIENT
  Age: 26 Year
  Sex: Female

DRUGS (1)
  1. NALTREXONE [Suspect]
     Indication: CHRONIC FATIGUE SYNDROME
     Dosage: ^LOW DOSE NALTREXONE^ BUT DOSE UNKNOWN
     Route: 048

REACTIONS (2)
  - Liver abscess [Recovered/Resolved]
  - Off label use [Unknown]
